FAERS Safety Report 7283342-4 (Version None)
Quarter: 2011Q1

REPORT INFORMATION
  Report Type: 
  Country: None (occurrence: None)
  Receive Date: 20110131
  Receipt Date: 20110113
  Transmission Date: 20110831
  Serious: Yes (Death)
  Sender: FDA-Public Use
  Company Number: IMP_05191_2011

PATIENT
  Age: 48 Year
  Sex: Male

DRUGS (1)
  1. OXYMORPHONE [Suspect]
     Dosage: (DF ORAL)
     Route: 048

REACTIONS (3)
  - POISONING DELIBERATE [None]
  - CARDIAC ARREST [None]
  - RESPIRATORY ARREST [None]
